FAERS Safety Report 16713203 (Version 4)
Quarter: 2020Q1

REPORT INFORMATION
  Report Type: Spontaneous
  Country: US (occurrence: US)
  Receive Date: 20190817
  Receipt Date: 20200325
  Transmission Date: 20200409
  Serious: No
  Sender: FDA-Public Use
  Company Number: US-TAKEDA-2019TUS048173

PATIENT
  Age: 69 Year
  Sex: Female

DRUGS (2)
  1. NINLARO [Suspect]
     Active Substance: IXAZOMIB CITRATE
     Indication: AMYLOIDOSIS
     Dosage: 3 MILLIGRAM
     Route: 048
     Dates: start: 20190720
  2. NINLARO [Suspect]
     Active Substance: IXAZOMIB CITRATE
     Indication: WHITE BLOOD CELL COUNT INCREASED
     Dosage: UNK
     Route: 048
     Dates: start: 20200322

REACTIONS (8)
  - Ill-defined disorder [Unknown]
  - Constipation [Unknown]
  - Uterine leiomyoma [Unknown]
  - Neuropathy peripheral [Unknown]
  - Pyrexia [Unknown]
  - Off label use [Unknown]
  - Abdominal pain upper [Unknown]
  - Product dose omission [Unknown]

NARRATIVE: CASE EVENT DATE: 20190720
